FAERS Safety Report 16825282 (Version 2)
Quarter: 2019Q4

REPORT INFORMATION
  Report Type: Spontaneous
  Country: IL (occurrence: IL)
  Receive Date: 20190919
  Receipt Date: 20191031
  Transmission Date: 20200122
  Serious: Yes (Other)
  Sender: FDA-Public Use
  Company Number: IL-009507513-1909ISR005390

PATIENT
  Age: 50 Year
  Sex: Male

DRUGS (3)
  1. KEYTRUDA [Suspect]
     Active Substance: PEMBROLIZUMAB
     Indication: RENAL CELL CARCINOMA
     Dosage: CYCLICAL
     Dates: end: 20190909
  2. AXITINIB [Suspect]
     Active Substance: AXITINIB
     Indication: RENAL CELL CARCINOMA
     Dosage: CYCLICAL
     Dates: end: 201910
  3. FLUCONAZOLE. [Suspect]
     Active Substance: FLUCONAZOLE
     Indication: ANTIFUNGAL TREATMENT
     Dosage: UNK
     Dates: end: 2019

REACTIONS (3)
  - Hepatitis C [Recovering/Resolving]
  - Product use in unapproved indication [Unknown]
  - Alanine aminotransferase increased [Recovering/Resolving]
